FAERS Safety Report 19537799 (Version 1)
Quarter: 2021Q3

REPORT INFORMATION
  Report Type: Spontaneous
  Country: US (occurrence: US)
  Receive Date: 20210714
  Receipt Date: 20210714
  Transmission Date: 20211014
  Serious: Yes (Hospitalization)
  Sender: FDA-Public Use
  Company Number: None

PATIENT
  Age: 63 Year
  Sex: Female
  Weight: 76.7 kg

DRUGS (2)
  1. CARBOPLATIN. [Suspect]
     Active Substance: CARBOPLATIN
     Indication: CHEMOTHERAPY
     Dates: end: 20210702
  2. ALIMTA [Suspect]
     Active Substance: PEMETREXED DISODIUM
     Indication: CHEMOTHERAPY
     Dates: end: 20210702

REACTIONS (6)
  - Decreased appetite [None]
  - Pyrexia [None]
  - Feeling abnormal [None]
  - Metabolic disorder [None]
  - Dehydration [None]
  - Confusional state [None]

NARRATIVE: CASE EVENT DATE: 20210705
